FAERS Safety Report 6519807-X (Version None)
Quarter: 2009Q4

REPORT INFORMATION
  Report Type: 
  Country: None (occurrence: None)
  Receive Date: 20091228
  Receipt Date: 20091228
  Transmission Date: 20100525
  Serious: No
  Sender: FDA-Public Use
  Company Number: None

PATIENT
  Age: 44 Year
  Sex: Female
  Weight: 58.9676 kg

DRUGS (1)
  1. PROVENTIL-HFA [Suspect]
     Indication: ASTHMA
     Dosage: 1 OR 2 PUFFS AS NEEDED INHAL
     Route: 055
     Dates: start: 20090412, end: 20090512

REACTIONS (1)
  - DRUG INEFFECTIVE [None]
